FAERS Safety Report 4441123-0 (Version None)
Quarter: 2004Q3

REPORT INFORMATION
  Report Type: 
  Country: None (occurrence: None)
  Receive Date: 20040902
  Receipt Date: 20040902
  Transmission Date: 20050211
  Serious: No
  Sender: FDA-Public Use
  Company Number: None

PATIENT
  Sex: Male

DRUGS (3)
  1. GEODON [Suspect]
     Dosage: 40 MG
     Dates: start: 20030101
  2. CLONIDINE HCL [Suspect]
     Dosage: 40 MG
  3. ZOLOFT [Suspect]
     Dosage: 120 MG

REACTIONS (3)
  - BODY HEIGHT INCREASED [None]
  - DIABETES MELLITUS [None]
  - WEIGHT INCREASED [None]
